FAERS Safety Report 7536441-3 (Version None)
Quarter: 2011Q2

REPORT INFORMATION
  Report Type: 
  Country: None (occurrence: None)
  Receive Date: 20110609
  Receipt Date: 20110531
  Transmission Date: 20111010
  Serious: Yes (Hospitalization)
  Sender: FDA-Public Use
  Company Number: JP-SANOFI-AVENTIS-2011SA033576

PATIENT
  Age: 25 Year
  Sex: Female

DRUGS (12)
  1. NITRAZEPAM [Suspect]
     Route: 048
  2. NITRAZEPAM [Suspect]
     Route: 048
     Dates: start: 20110501, end: 20110501
  3. DORAL [Suspect]
     Route: 048
  4. PROMETHAZINE HCL [Suspect]
     Route: 048
  5. BISACODYL [Suspect]
     Route: 048
  6. PL GRAN. [Suspect]
     Route: 048
  7. SEROQUEL [Suspect]
     Indication: SCHIZOPHRENIA
     Route: 048
  8. BISACODYL [Suspect]
     Route: 048
     Dates: start: 20110501, end: 20110501
  9. ZOLPIDEM [Suspect]
     Dosage: LARGE DOSE (NOS).
     Route: 048
  10. SEROQUEL [Suspect]
     Route: 048
     Dates: start: 20110501, end: 20110501
  11. DORAL [Suspect]
     Route: 048
     Dates: start: 20110501, end: 20110501
  12. PROMETHAZINE HCL [Suspect]
     Route: 048
     Dates: start: 20110501, end: 20110501

REACTIONS (2)
  - PNEUMONIA ASPIRATION [None]
  - MULTIPLE DRUG OVERDOSE INTENTIONAL [None]
